FAERS Safety Report 4352166-X (Version None)
Quarter: 2004Q2

REPORT INFORMATION
  Report Type: 
  Country: None (occurrence: None)
  Receive Date: 20040428
  Receipt Date: 20040421
  Transmission Date: 20050107
  Serious: Yes (Other)
  Sender: FDA-Public Use
  Company Number: 2003-09-1644

PATIENT
  Age: 53 Year
  Sex: Male

DRUGS (2)
  1. PEG-INTRON [Suspect]
     Indication: HEPATITIS C
     Dosage: 80 MCG SUBCUTANEOUS
     Route: 058
  2. REBETOL [Suspect]
     Indication: HEPATITIS C

REACTIONS (7)
  - CELLULITIS [None]
  - INJECTION SITE ULCER [None]
  - LYMPHOCYTIC INFILTRATION [None]
  - SCAB [None]
  - SKIN DEPIGMENTATION [None]
  - SKIN NECROSIS [None]
  - TOXIC SKIN ERUPTION [None]
